FAERS Safety Report 25423033 (Version 2)
Quarter: 2025Q2

REPORT INFORMATION
  Report Type: Report from Study
  Country: US (occurrence: US)
  Receive Date: 20250611
  Receipt Date: 20250617
  Transmission Date: 20250716
  Serious: Yes (Other)
  Sender: ACADIA PHARMACEUTICALS
  Company Number: US-ACADIA PHARMACEUTICALS INC.-ACA-2025-PIM-007016

PATIENT
  Age: 85 Year
  Sex: Male

DRUGS (19)
  1. NUPLAZID [Suspect]
     Active Substance: PIMAVANSERIN TARTRATE
     Indication: Parkinson^s disease
     Dosage: 34 MILLIGRAM, QD
     Route: 065
     Dates: start: 20250521, end: 20250527
  2. NUPLAZID [Suspect]
     Active Substance: PIMAVANSERIN TARTRATE
     Indication: Hallucination
  3. AMIODARONE [Concomitant]
     Active Substance: AMIODARONE
  4. APIXABAN [Concomitant]
     Active Substance: APIXABAN
  5. ASCORBIC ACID [Concomitant]
     Active Substance: ASCORBIC ACID
  6. CARBIDOPA\LEVODOPA [Concomitant]
     Active Substance: CARBIDOPA\LEVODOPA
  7. CARBOXYMETHYLCELLULOSE [Concomitant]
     Active Substance: CARBOXYMETHYLCELLULOSE
  8. CHOLECALCIFEROL [Concomitant]
     Active Substance: CHOLECALCIFEROL
  9. CLONIDINE [Concomitant]
     Active Substance: CLONIDINE
  10. CYANOCOBALAMIN [Concomitant]
     Active Substance: CYANOCOBALAMIN
  11. FERROUS SULFATE [Concomitant]
     Active Substance: FERROUS SULFATE
  12. MELATONIN [Concomitant]
     Active Substance: MELATONIN
  13. OMEPRAZOLE [Concomitant]
     Active Substance: OMEPRAZOLE
  14. PYRIDOXINE [Concomitant]
     Active Substance: PYRIDOXINE
  15. QUETIAPINE [Concomitant]
     Active Substance: QUETIAPINE
  16. RIVASTIGMINE [Concomitant]
     Active Substance: RIVASTIGMINE
  17. ROSUVASTATIN [Concomitant]
     Active Substance: ROSUVASTATIN
  18. SOTALOL [Concomitant]
     Active Substance: SOTALOL
  19. TROSPIUM [Concomitant]
     Active Substance: TROSPIUM

REACTIONS (4)
  - Muscle rigidity [Unknown]
  - Cognitive disorder [Unknown]
  - Hallucination [Unknown]
  - Fall [Unknown]

NARRATIVE: CASE EVENT DATE: 20250527
